FAERS Safety Report 22131936 (Version 2)
Quarter: 2023Q2

REPORT INFORMATION
  Report Type: Report from Study
  Country: US (occurrence: US)
  Receive Date: 20230323
  Receipt Date: 20230519
  Transmission Date: 20230722
  Serious: Yes (Hospitalization, Other)
  Sender: FDA-Public Use
  Company Number: US-ASTELLAS-2023US008687

PATIENT
  Age: 62 Year
  Sex: Male

DRUGS (5)
  1. ENZALUTAMIDE [Suspect]
     Active Substance: ENZALUTAMIDE
     Indication: Prostate cancer
     Dosage: 160 MG, ONCE DAILY (NIGHTLY)
     Route: 048
  2. ENZALUTAMIDE [Suspect]
     Active Substance: ENZALUTAMIDE
     Dosage: UNK UNK, UNKNOWN FREQ. (DECREASED DOSE)
     Route: 048
     Dates: start: 202212
  3. FLOMAX [Concomitant]
     Active Substance: TAMSULOSIN HYDROCHLORIDE
     Indication: Product used for unknown indication
     Dosage: 0.4 MG, UNKNOWN FREQ.
     Route: 065
  4. LISINOPRIL [Concomitant]
     Active Substance: LISINOPRIL
     Indication: Product used for unknown indication
     Route: 065
  5. PRAZOSIN [Concomitant]
     Active Substance: PRAZOSIN
     Indication: Product used for unknown indication
     Route: 065

REACTIONS (26)
  - Sleep deficit [Unknown]
  - Dyspnoea [Unknown]
  - Brain hypoxia [Recovering/Resolving]
  - Neuropathy peripheral [Unknown]
  - Candida infection [Unknown]
  - Pharyngitis [Not Recovered/Not Resolved]
  - Rhinitis [Not Recovered/Not Resolved]
  - Sinusitis [Not Recovered/Not Resolved]
  - Brain fog [Recovering/Resolving]
  - Confusional state [Recovering/Resolving]
  - COVID-19 [Recovering/Resolving]
  - Paranasal sinus discomfort [Unknown]
  - Nasal polyps [Unknown]
  - Visual impairment [Not Recovered/Not Resolved]
  - Fear of death [Unknown]
  - Dry mouth [Unknown]
  - Illness [Unknown]
  - Weight decreased [Unknown]
  - Pharyngeal swelling [Unknown]
  - Dysphagia [Unknown]
  - Anosmia [Unknown]
  - Taste disorder [Unknown]
  - Asthenia [Unknown]
  - Headache [Unknown]
  - Head discomfort [Unknown]
  - Product availability issue [Unknown]

NARRATIVE: CASE EVENT DATE: 20221201
